FAERS Safety Report 5190794-2 (Version None)
Quarter: 2006Q4

REPORT INFORMATION
  Report Type: 
  Country: None (occurrence: None)
  Receive Date: 20061222
  Receipt Date: 20061212
  Transmission Date: 20070319
  Serious: Yes (Hospitalization)
  Sender: FDA-Public Use
  Company Number: FR-ELI_LILLY_AND_COMPANY-FR200612001941

PATIENT
  Age: 58 Year
  Sex: Female

DRUGS (8)
  1. FORTEO [Suspect]
     Indication: OSTEOPOROSIS
     Dosage: 1 D/F, DAILY (1/D)
     Route: 058
     Dates: start: 20060313, end: 20060329
  2. LORMETAZEPAM [Concomitant]
     Dosage: 2 MG, EACH EVENING
  3. ANAFRANIL                               /GFR/ [Concomitant]
     Dosage: 25 UNK, 3/D
  4. ALPRAZOLAM [Concomitant]
     Dosage: 0.5 UNK, 3/D
     Route: 048
  5. FENOFIBRATE [Concomitant]
     Dosage: 200 UNK, DAILY (1/D)
  6. SELOKEN [Concomitant]
     Dosage: 100 UNK, EACH MORNING
  7. AERIUS                                  /FIN/ [Concomitant]
     Dosage: 1 D/F, DAILY (1/D)
  8. FUCIDINE CAP [Concomitant]
     Route: 062

REACTIONS (4)
  - DRUG HYPERSENSITIVITY [None]
  - FACE OEDEMA [None]
  - HYPERSENSITIVITY [None]
  - SKIN TEST POSITIVE [None]
